FAERS Safety Report 7553962 (Version 2)
Quarter: 2012Q4

REPORT INFORMATION
  Report Type: 
  Country: US (occurrence: US)
  Receive Date: 20100825
  Receipt Date: 20120905
  Transmission Date: 20130627
  Serious: Yes (Hospitalization)
  Sender: FDA-Public Use
  Company Number: US-US-EMD SERONO, INC.-7012363

PATIENT
  Age: 51 None
  Sex: Female
  Weight: 86 kg

DRUGS (2)
  1. REBIF [Suspect]
     Indication: MULTIPLE SCLEROSIS
     Route: 058
     Dates: start: 20100519
  2. CYMBALTA [Concomitant]
     Indication: NEUROPATHY PERIPHERAL

REACTIONS (7)
  - White blood cell count decreased [Unknown]
  - Injection site cellulitis [Recovered/Resolved]
  - Injection site infection [Not Recovered/Not Resolved]
  - Injection site abscess [Unknown]
  - Insomnia [Unknown]
  - Feeling hot [Unknown]
  - Injection site pain [Unknown]
